FAERS Safety Report 4724624-7 (Version None)
Quarter: 2005Q3

REPORT INFORMATION
  Report Type: 
  Country: None (occurrence: None)
  Receive Date: 20050726
  Receipt Date: 20050714
  Transmission Date: 20060218
  Serious: Yes (Hospitalization)
  Sender: FDA-Public Use
  Company Number: JP-MERCK-0507USA02875

PATIENT
  Age: 84 Year
  Sex: Male

DRUGS (9)
  1. NOROXIN [Suspect]
     Indication: URINARY TRACT INFECTION
     Route: 048
     Dates: start: 20050708, end: 20050713
  2. FLIVAS [Concomitant]
     Route: 048
     Dates: start: 19960101, end: 20050713
  3. NUTRITIONAL SUPPLEMENTS [Concomitant]
     Route: 048
     Dates: start: 20000101
  4. FRANDOL [Concomitant]
     Route: 048
  5. PEPCID [Concomitant]
     Route: 048
  6. HERBESSER [Concomitant]
     Route: 048
  7. URSODIOL [Concomitant]
     Route: 048
  8. SELBEX [Concomitant]
     Route: 048
  9. MAGNESIUM OXIDE [Concomitant]
     Route: 048

REACTIONS (2)
  - BILE DUCT OBSTRUCTION [None]
  - JAUNDICE [None]
